FAERS Safety Report 15388026 (Version 1)
Quarter: 2018Q3

REPORT INFORMATION
  Report Type: Spontaneous
  Country: DE (occurrence: DE)
  Receive Date: 20180915
  Receipt Date: 20180915
  Transmission Date: 20181010
  Serious: Yes (Congenital Anomaly, Other)
  Sender: FDA-Public Use
  Company Number: DE-AUROBINDO-AUR-APL-2018-045542

PATIENT
  Age: 1 Day
  Sex: Female
  Weight: 3.05 kg

DRUGS (4)
  1. CITALOPRAM [Suspect]
     Active Substance: CITALOPRAM HYDROBROMIDE
     Indication: DEPRESSION
     Dosage: 20 MILLIGRAM, ONCE A DAY, 1 {TRIMESTER}, 0. ? 38.6. GESTATIONAL WEEK
     Route: 064
     Dates: start: 20170717, end: 20180415
  2. XANAFLU [Concomitant]
     Active Substance: INFLUENZA VIRUS VACCINE
     Indication: IMMUNISATION
     Dosage: UNK, 2 {TRIMESTER}, 16.3. ? 16.3. GESTATIONAL WEEK
     Route: 064
     Dates: start: 20171109, end: 20171109
  3. FOLIC ACID. [Concomitant]
     Active Substance: FOLIC ACID
     Indication: PROPHYLAXIS OF NEURAL TUBE DEFECT
     Dosage: 0.8 MILLIGRAM, ONCE A DAY, 1 {TRIMESTER},5. ? 38.6. GESTATIONAL WEEK
     Route: 064
  4. PANTOPRAZOL                        /01263201/ [Concomitant]
     Active Substance: PANTOPRAZOLE
     Indication: GASTRITIS
     Dosage: UNK, 3 {TRIMESTER}, 29. ? 32. GESTATIONAL WEEK
     Route: 064

REACTIONS (2)
  - Ventricular septal defect [Not Recovered/Not Resolved]
  - Foetal exposure during pregnancy [Unknown]

NARRATIVE: CASE EVENT DATE: 20180415
